FAERS Safety Report 7505667-7 (Version None)
Quarter: 2011Q2

REPORT INFORMATION
  Report Type: 
  Country: None (occurrence: None)
  Receive Date: 20110526
  Receipt Date: 20110517
  Transmission Date: 20111010
  Serious: Yes (Hospitalization)
  Sender: FDA-Public Use
  Company Number: US-AMGEN-USASP2011025565

PATIENT
  Age: 57 Year
  Sex: Female

DRUGS (1)
  1. ENBREL [Suspect]
     Indication: RHEUMATOID ARTHRITIS
     Dosage: 50 MG, QWK
     Dates: start: 20031201, end: 20050101

REACTIONS (8)
  - FINGER DEFORMITY [None]
  - C-REACTIVE PROTEIN INCREASED [None]
  - STRESS [None]
  - RHEUMATOID ARTHRITIS [None]
  - RED BLOOD CELL SEDIMENTATION RATE INCREASED [None]
  - MUSCLE SPASMS [None]
  - HYPERTENSION [None]
  - CHEST PAIN [None]
